FAERS Safety Report 15222089 (Version 1)
Quarter: 2018Q3

REPORT INFORMATION
  Report Type: Spontaneous
  Country: US (occurrence: US)
  Receive Date: 20180705
  Receipt Date: 20180705
  Transmission Date: 20181010
  Serious: No
  Sender: FDA-Public Use
  Company Number: None

PATIENT
  Age: 75 Year
  Sex: Female

DRUGS (1)
  1. EXTAVIA [Suspect]
     Active Substance: INTERFERON BETA-1B
     Dosage: OTHER FREQUENCY
     Route: 058

REACTIONS (3)
  - Product packaging issue [None]
  - Device connection issue [None]
  - Device use issue [None]

NARRATIVE: CASE EVENT DATE: 20180705
